FAERS Safety Report 11836033 (Version 1)
Quarter: 2015Q4

REPORT INFORMATION
  Report Type: Spontaneous
  Country: US (occurrence: None)
  Receive Date: 20151214
  Receipt Date: 20151214
  Transmission Date: 20160305
  Serious: Yes (Hospitalization)
  Sender: FDA-Public Use
  Company Number: None

PATIENT
  Age: 75 Year
  Sex: Male
  Weight: 103 kg

DRUGS (2)
  1. BENDAMUSTINE HYDROCHLORIDE [Suspect]
     Active Substance: BENDAMUSTINE HYDROCHLORIDE
     Dates: end: 20151203
  2. RITUXIMAB (MOAB C2B8 ANTI CD20, CHIMERIC) [Suspect]
     Active Substance: RITUXIMAB
     Dates: end: 20151203

REACTIONS (14)
  - Malaise [None]
  - Asthenia [None]
  - Chills [None]
  - Decreased appetite [None]
  - Drug eruption [None]
  - Vasculitis [None]
  - Sepsis [None]
  - Rash morbilliform [None]
  - Rash [None]
  - Nausea [None]
  - Renal failure [None]
  - Feeling hot [None]
  - Chest discomfort [None]
  - Diarrhoea [None]

NARRATIVE: CASE EVENT DATE: 20151204
